FAERS Safety Report 6237827-X (Version None)
Quarter: 2009Q2

REPORT INFORMATION
  Report Type: 
  Country: None (occurrence: None)
  Receive Date: 20090617
  Receipt Date: 20090608
  Transmission Date: 20091009
  Serious: Yes (Other)
  Sender: FDA-Public Use
  Company Number: CHPA2009US13230

PATIENT
  Sex: Female

DRUGS (1)
  1. EXCEDRIN EXTRA STRENGTH (NCH) (CAFFINE CITRATE, ACETYSALICYLIC ACID, A [Suspect]
     Dosage: ORAL
     Route: 048

REACTIONS (1)
  - GASTRIC ULCER HAEMORRHAGE [None]
